FAERS Safety Report 17683231 (Version 1)
Quarter: 2020Q2

REPORT INFORMATION
  Report Type: Spontaneous
  Country: US (occurrence: US)
  Receive Date: 20200420
  Receipt Date: 20200420
  Transmission Date: 20200714
  Serious: Yes (Other)
  Sender: FDA-Public Use
  Company Number: US-ROCHE-2581172

PATIENT
  Sex: Female

DRUGS (1)
  1. OCREVUS [Suspect]
     Active Substance: OCRELIZUMAB
     Indication: PRODUCT USED FOR UNKNOWN INDICATION
     Dosage: 300 MG X 2 FOR FIRST CYCLE OF OCREVUS
     Route: 065

REACTIONS (4)
  - Urinary tract infection [Unknown]
  - Ischaemic cerebral infarction [Unknown]
  - Dizziness [Unknown]
  - Uterine haemorrhage [Unknown]
